FAERS Safety Report 16134203 (Version 1)
Quarter: 2019Q1

REPORT INFORMATION
  Report Type: Report from Study
  Country: GR (occurrence: GR)
  Receive Date: 20190329
  Receipt Date: 20190329
  Transmission Date: 20190418
  Serious: Yes (Other)
  Sender: FDA-Public Use
  Company Number: GR-ASPEN-GLO2018GR002180

PATIENT
  Age: 93 Year
  Sex: Female
  Weight: 60 kg

DRUGS (8)
  1. CHLORAMBUCIL [Suspect]
     Active Substance: CHLORAMBUCIL
     Dosage: 10 MG, QD
     Route: 048
     Dates: start: 20180102, end: 20180108
  2. EPOETIN ALFA [Concomitant]
     Active Substance: ERYTHROPOIETIN
     Indication: PRODUCT USED FOR UNKNOWN INDICATION
     Dosage: 40000 IU, ONCE WEEKLY
     Route: 058
     Dates: start: 20150117
  3. ALPRAZOLAM. [Concomitant]
     Active Substance: ALPRAZOLAM
     Indication: ANXIETY DISORDER
     Dosage: 1 UNK, QD
     Route: 048
     Dates: start: 20150101
  4. ALLOPURINOL. [Concomitant]
     Active Substance: ALLOPURINOL
     Indication: PRODUCT USED FOR UNKNOWN INDICATION
     Dosage: 1 UNK, QD
     Route: 048
     Dates: start: 20171230
  5. OBINUTUZUMAB. [Suspect]
     Active Substance: OBINUTUZUMAB
     Indication: CHRONIC LYMPHOCYTIC LEUKAEMIA
     Dosage: 1 G DAY 1,8,15 OF THE 1 CYCLE MONTHLY
     Route: 042
  6. T4 [Concomitant]
     Active Substance: LEVOTHYROXINE
     Indication: HYPERTHYROIDISM
     Dosage: 1 UNK, QD
     Route: 048
     Dates: start: 20150101
  7. CHLORAMBUCIL [Suspect]
     Active Substance: CHLORAMBUCIL
     Indication: CHRONIC LYMPHOCYTIC LEUKAEMIA
     Dosage: 10 MG, QD
     Route: 048
     Dates: start: 20171201, end: 20171207
  8. ASPIRIN. [Concomitant]
     Active Substance: ASPIRIN
     Indication: PRODUCT USED FOR UNKNOWN INDICATION
     Dosage: 1 UNK, QD
     Route: 048
     Dates: start: 20151001

REACTIONS (3)
  - Neutropenia [Recovered/Resolved]
  - Neutropenia [Recovered/Resolved]
  - Anaemia [Recovering/Resolving]

NARRATIVE: CASE EVENT DATE: 20171229
